FAERS Safety Report 19503132 (Version 4)
Quarter: 2021Q4

REPORT INFORMATION
  Report Type: Report from Study
  Country: DE (occurrence: DE)
  Receive Date: 20210708
  Receipt Date: 20211001
  Transmission Date: 20220303
  Serious: Yes (Other)
  Sender: FDA-Public Use
  Company Number: DE-LEO PHARMA-337393

PATIENT
  Age: 36 Year
  Sex: Male
  Weight: 113 kg

DRUGS (1)
  1. BRODALUMAB [Suspect]
     Active Substance: BRODALUMAB
     Indication: Psoriasis
     Dosage: 210 MG/1.5 ML (STARTED ON 04/FEB/2021)
     Route: 058
     Dates: start: 20210204

REACTIONS (1)
  - No adverse event [Not Recovered/Not Resolved]
